FAERS Safety Report 14602890 (Version 2)
Quarter: 2018Q1

REPORT INFORMATION
  Report Type: Spontaneous
  Country: GB (occurrence: GB)
  Receive Date: 20180306
  Receipt Date: 20180309
  Transmission Date: 20180509
  Serious: Yes (Other)
  Sender: FDA-Public Use
  Company Number: GB-ASTRAZENECA-2018SE25519

PATIENT
  Age: 42 Year
  Sex: Male
  Weight: 69 kg

DRUGS (4)
  1. CANDESARTAN CILEXETIL. [Suspect]
     Active Substance: CANDESARTAN CILEXETIL
     Dosage: 12.0MG UNKNOWN
     Route: 048
     Dates: start: 20170305, end: 20171120
  2. PROPRANOLOL [Concomitant]
     Active Substance: PROPRANOLOL HYDROCHLORIDE
  3. AMITRIPTYLINE [Concomitant]
     Active Substance: AMITRIPTYLINE
  4. CANDESARTAN. [Suspect]
     Active Substance: CANDESARTAN
     Dosage: 12.0MG UNKNOWN
     Route: 048
     Dates: start: 20170305, end: 20171120

REACTIONS (2)
  - Visual impairment [Not Recovered/Not Resolved]
  - Vision blurred [Not Recovered/Not Resolved]

NARRATIVE: CASE EVENT DATE: 20170310
